FAERS Safety Report 6440417-7 (Version None)
Quarter: 2009Q4

REPORT INFORMATION
  Report Type: 
  Country: None (occurrence: None)
  Receive Date: 20091113
  Receipt Date: 20091102
  Transmission Date: 20100525
  Serious: Yes (Other)
  Sender: FDA-Public Use
  Company Number: US-PFIZER INC-2009292498

PATIENT
  Sex: Female
  Weight: 78.458 kg

DRUGS (6)
  1. DETROL LA [Suspect]
     Indication: INCONTINENCE
     Dosage: 4 MG, 1X/DAY
     Route: 048
     Dates: start: 20091001
  2. WARFARIN [Suspect]
     Indication: TACHYCARDIA
     Dosage: UNK
     Route: 048
     Dates: start: 20091001
  3. FURADANTIN [Suspect]
  4. HYDROCHLOROTHIAZIDE [Concomitant]
     Dosage: UNK
  5. ATENOLOL [Concomitant]
     Dosage: UNK
  6. ACETYLSALICYLIC ACID [Concomitant]

REACTIONS (5)
  - ARTHRALGIA [None]
  - ARTHRITIS [None]
  - BACK DISORDER [None]
  - MYALGIA [None]
  - TACHYCARDIA [None]
